FAERS Safety Report 9619327 (Version 1)
Quarter: 2013Q4

REPORT INFORMATION
  Report Type: Spontaneous
  Country: FR (occurrence: FR)
  Receive Date: 20131014
  Receipt Date: 20131014
  Transmission Date: 20140711
  Serious: Yes (Hospitalization)
  Sender: FDA-Public Use
  Company Number: FR-MERCK-1310FRA002381

PATIENT
  Age: 80 Year
  Sex: Male

DRUGS (1)
  1. NOXAFIL [Suspect]
     Indication: ASPERGILLOMA
     Dosage: 200 MG, BID
     Route: 048
     Dates: start: 201305

REACTIONS (3)
  - Hyponatraemia [Recovered/Resolved]
  - Confusional state [Recovered/Resolved]
  - Adrenocortical insufficiency acute [Recovered/Resolved]
